FAERS Safety Report 5197710-8 (Version None)
Quarter: 2006Q4

REPORT INFORMATION
  Report Type: 
  Country: None (occurrence: None)
  Receive Date: 20061228
  Receipt Date: 20061214
  Transmission Date: 20070319
  Serious: Yes (Hospitalization)
  Sender: FDA-Public Use
  Company Number: 02100-JPN-06-0557

PATIENT
  Age: 58 Year
  Sex: Female

DRUGS (5)
  1. CILOSTAZOL [Suspect]
     Indication: ANGINA PECTORIS
     Dosage: 200 MG, ORAL
     Route: 048
     Dates: start: 20061027, end: 20061106
  2. AMLODIPINE BESYLATE [Suspect]
     Indication: HYPERTENSION
     Dosage: 5 MG, ORAL
     Route: 048
     Dates: start: 20061024, end: 20061106
  3. ASPIRIN [Suspect]
     Indication: ANGINA PECTORIS
     Dosage: 100 MG, ORAL
     Route: 048
     Dates: start: 20061027, end: 20061106
  4. CANDESARTAN CILEXETIL [Concomitant]
  5. ROSUVASTATIN CALSIUM [Concomitant]

REACTIONS (2)
  - ERYTHEMA [None]
  - RASH [None]
